FAERS Safety Report 10017376 (Version 1)
Quarter: 2014Q1

REPORT INFORMATION
  Report Type: Spontaneous
  Country: US (occurrence: US)
  Receive Date: 20140318
  Receipt Date: 20140318
  Transmission Date: 20141002
  Serious: No
  Sender: FDA-Public Use
  Company Number: US-PFIZER INC-2014074641

PATIENT
  Age: 66 Year
  Sex: Female

DRUGS (1)
  1. AMLODIPINE BESILATE [Suspect]
     Dosage: UNK
     Dates: start: 201309, end: 201401

REACTIONS (2)
  - Local swelling [Unknown]
  - Fluid retention [Unknown]
